FAERS Safety Report 5841699-2 (Version None)
Quarter: 2008Q3

REPORT INFORMATION
  Report Type: 
  Country: None (occurrence: None)
  Receive Date: 20080811
  Receipt Date: 20080811
  Transmission Date: 20090109
  Serious: Yes (Hospitalization, Disabling, Other)
  Sender: FDA-Public Use
  Company Number: None

PATIENT
  Age: 62 Year
  Sex: Female
  Weight: 61.2356 kg

DRUGS (2)
  1. LEVAQUIN [Suspect]
     Indication: BRONCHITIS
     Dosage: 750 DAILY PO, FOR 8 DAYS
     Route: 048
     Dates: start: 20080714, end: 20080722
  2. PREDNISONE [Suspect]
     Indication: BRONCHITIS
     Dosage: 20 MG 3 DAILY PO, FOR 5 DAYS
     Route: 048
     Dates: start: 20080717, end: 20080722

REACTIONS (5)
  - BRONCHOSPASM [None]
  - DRUG INTERACTION [None]
  - PAIN IN EXTREMITY [None]
  - PHOTOSENSITIVITY REACTION [None]
  - TENDON RUPTURE [None]
